FAERS Safety Report 6433015-2 (Version None)
Quarter: 2009Q4

REPORT INFORMATION
  Report Type: 
  Country: None (occurrence: None)
  Receive Date: 20091109
  Receipt Date: 20091028
  Transmission Date: 20100525
  Serious: Yes (Hospitalization)
  Sender: FDA-Public Use
  Company Number: ES-ELI_LILLY_AND_COMPANY-ES200910007826

PATIENT
  Age: 76 Year
  Sex: Female

DRUGS (6)
  1. FORTEO [Suspect]
     Dosage: 20 UG, UNKNOWN
     Route: 058
     Dates: start: 20070101
  2. METFORMIN HCL [Concomitant]
     Dosage: UNK, UNKNOWN
  3. NOLOTIL [Concomitant]
     Dosage: UNK, UNKNOWN
  4. ZALDIAR [Concomitant]
     Dosage: UNK, UNKNOWN
  5. AMARYL [Concomitant]
     Indication: DIABETES MELLITUS
     Dosage: UNK, UNKNOWN
  6. ANTIHYPERTENSIVES [Concomitant]
     Dosage: UNK, UNKNOWN

REACTIONS (5)
  - ARRHYTHMIA [None]
  - FATIGUE [None]
  - OEDEMA PERIPHERAL [None]
  - POLLAKIURIA [None]
  - RESPIRATORY TRACT INFECTION [None]
